FAERS Safety Report 15670319 (Version 2)
Quarter: 2021Q4

REPORT INFORMATION
  Report Type: Spontaneous
  Country: US (occurrence: US)
  Receive Date: 20181129
  Receipt Date: 20211203
  Transmission Date: 20220303
  Serious: Yes (Disabling)
  Sender: FDA-Public Use
  Company Number: US-TEVA-2018-US-979668

PATIENT
  Age: 63 Year
  Sex: Female
  Weight: 131.5 kg

DRUGS (69)
  1. DOCETAXEL [Suspect]
     Active Substance: DOCETAXEL
     Indication: Invasive lobular breast carcinoma
     Dosage: DOSAGE: 140 MG, NO OF CYCLES: 06, FREQUENCY: EVERY 3 WEEKS, DOSAGE: 75MG/M2
     Route: 042
     Dates: start: 20131007, end: 20131212
  2. DOCETAXEL [Suspect]
     Active Substance: DOCETAXEL
     Dosage: DOSAGE: 140 MG, NO OF CYCLES: 06, FREQUENCY: EVERY 3 WEEKSY, DOSAGE: 75MG/M2
     Route: 042
     Dates: start: 20131007, end: 20131212
  3. DOXORUBICIN [Suspect]
     Active Substance: DOXORUBICIN
     Indication: Invasive lobular breast carcinoma
     Dosage: DOSAGE: 50 MG/M2, FREQUENCY; EVERY 3 WEEKS,  NO OF CYCLES: 06
     Route: 042
     Dates: start: 20130826, end: 20131209
  4. DOCETAXEL [Suspect]
     Active Substance: DOCETAXEL
     Indication: Invasive lobular breast carcinoma
     Dosage: DOSAGE: 140 MG, NO OF CYCLES: 06, FREQUENCY: EVERY 3 WEEKS, DOSAGE: 75MG/M2
     Route: 042
     Dates: start: 20130826, end: 20130826
  5. DOCETAXEL [Suspect]
     Active Substance: DOCETAXEL
     Dosage: DOSAGE: 140 MG, NO OF CYCLES: 06, FREQUENCY: EVERY 3 WEEKS, DOSAGE: 75MG/M2
     Route: 042
     Dates: start: 20130826, end: 20130826
  6. DOCETAXEL [Suspect]
     Active Substance: DOCETAXEL
     Indication: Invasive lobular breast carcinoma
     Dosage: DOSAGE: 140 MG, NO OF CYCLES: 06, FREQUENCY: EVERY 3 WEEKS, DOSAGE: 75MG/M2
     Route: 042
     Dates: start: 20130916, end: 20130916
  7. DOCETAXEL [Suspect]
     Active Substance: DOCETAXEL
     Dosage: DOSAGE: 140 MG, NO OF CYCLES: 06, FREQUENCY: EVERY 3 WEEKS, DOSAGE: 75MG/M2
     Route: 042
     Dates: start: 20130916, end: 20130916
  8. CYTOXAN [Suspect]
     Active Substance: CYCLOPHOSPHAMIDE
     Indication: Invasive lobular breast carcinoma
     Dosage: NO OF CYCLES: 06, FREQUENCY: EVERY 3 WEEKS, DOSAGE: 500 MG/M2
     Route: 042
     Dates: start: 20130826, end: 20131209
  9. EPIPEN [Concomitant]
     Active Substance: EPINEPHRINE
     Indication: Hypersensitivity
     Dosage: 0.3/0.3 MG/ML, INJECT AS NEEDED
     Route: 065
     Dates: start: 2011
  10. CARISOPRODOL [Concomitant]
     Active Substance: CARISOPRODOL
     Dosage: TAKE ONE TABLET BY MOUTH THREE TIMES A DAY, ONGOING
     Route: 048
     Dates: start: 20110623
  11. ACETAMINOPHEN\HYDROCODONE BITARTRATE [Concomitant]
     Active Substance: ACETAMINOPHEN\HYDROCODONE BITARTRATE
     Dosage: 7.5-750 MG, TAKE ONE TABLET BY MOUTH THREE TIMES DAILY
     Route: 048
     Dates: start: 2003
  12. ACETAMINOPHEN\HYDROCODONE BITARTRATE [Concomitant]
     Active Substance: ACETAMINOPHEN\HYDROCODONE BITARTRATE
     Dosage: 5-500 MG, TAKE ONE TABLET BY MOUTH TWICE DAILY
     Route: 048
     Dates: start: 2004
  13. ACETAMINOPHEN\HYDROCODONE BITARTRATE [Concomitant]
     Active Substance: ACETAMINOPHEN\HYDROCODONE BITARTRATE
     Dosage: 5-500 MG, TAKE ONE TABLET BY MOUTH TWICE DAILY
     Route: 048
     Dates: start: 2005
  14. ACETAMINOPHEN\HYDROCODONE BITARTRATE [Concomitant]
     Active Substance: ACETAMINOPHEN\HYDROCODONE BITARTRATE
     Dosage: 7.5-750 MG, TAKE ONE TABLET BY MOUTH THREE TIMES DAILY
     Route: 048
     Dates: start: 2006
  15. ACETAMINOPHEN\HYDROCODONE BITARTRATE [Concomitant]
     Active Substance: ACETAMINOPHEN\HYDROCODONE BITARTRATE
     Dosage: 10-325 MG, TAKE ONE TABLET BY MOUTH EVERY 6 HOURS NEEDED, ONGOING
     Route: 048
     Dates: start: 2013
  16. DIOVAN [Concomitant]
     Active Substance: VALSARTAN
     Dosage: TAKE ONE TABLET BY MOUTH EVERYDAY
     Dates: start: 201106, end: 2015
  17. IBUPROFEN [Concomitant]
     Active Substance: IBUPROFEN
     Dosage: TAKE ONE TABLET BY MOUTH EVERYDAY AS NEEDED
     Route: 048
     Dates: start: 20110531
  18. IBUPROFEN [Concomitant]
     Active Substance: IBUPROFEN
     Dosage: TAKE ONE TABLET BY MOUTH THREE TIMES DAILY AS NEEDED
     Route: 048
     Dates: start: 2013
  19. ZOLPIDEM [Concomitant]
     Active Substance: ZOLPIDEM TARTRATE
     Dosage: TAKE ONE TABLET BY MOUTH EVERYDAY AT BEDTIME, ONGOING
     Route: 048
     Dates: start: 20110623
  20. NAPROXEN [Concomitant]
     Active Substance: NAPROXEN
     Dosage: TAKE ONE TABLET BY MOUTH TWICE DAILY, ONGOING
     Route: 048
     Dates: start: 20110721
  21. LORATADINE [Concomitant]
     Active Substance: LORATADINE
     Dosage: TAKE ONE TABLET BY EVERYDAY
     Route: 048
     Dates: start: 2011
  22. LORATADINE [Concomitant]
     Active Substance: LORATADINE
     Route: 048
     Dates: start: 2014
  23. CIPROFLOXACIN HYDROCHLORIDE [Concomitant]
     Active Substance: CIPROFLOXACIN HYDROCHLORIDE
     Dosage: TAKE ONE TABLET BY MOUTH TWICE DAILY
     Route: 048
     Dates: start: 20110208
  24. CIPROFLOXACIN HYDROCHLORIDE [Concomitant]
     Active Substance: CIPROFLOXACIN HYDROCHLORIDE
     Route: 048
     Dates: start: 2014
  25. AMBIEN [Concomitant]
     Active Substance: ZOLPIDEM TARTRATE
     Indication: Insomnia
     Dosage: TAKE 1 TABLET BY MOUTH AT BEDTIME
     Route: 048
     Dates: start: 2005
  26. AMBIEN [Concomitant]
     Active Substance: ZOLPIDEM TARTRATE
     Dosage: 2 TABLET AT BEDTIME AS NEEDED
     Route: 048
     Dates: start: 20130717, end: 20130801
  27. CELEBREX [Concomitant]
     Active Substance: CELECOXIB
     Dosage: TAKE 1 TAB BY MOUTH TWICE
     Route: 048
     Dates: start: 2005
  28. NAPROXEN [Concomitant]
     Active Substance: NAPROXEN
     Indication: Pain
     Dosage: TAKE ONE TABLET BY MOUTH TWICE DAILY AS NEEDED, ONGOING
     Route: 048
     Dates: start: 2011
  29. NAPROXEN [Concomitant]
     Active Substance: NAPROXEN
     Dosage: ONGOING
     Route: 048
     Dates: start: 2015
  30. PATANOL [Concomitant]
     Active Substance: OLOPATADINE HYDROCHLORIDE
     Dosage: INSTILL ONE DROP TWICE DAILY TO AFFECTED EYES 10 HOURS APART
     Route: 047
     Dates: start: 2011
  31. PROMETHAZINE DM [Concomitant]
     Active Substance: DEXTROMETHORPHAN HYDROBROMIDE\PROMETHAZINE HYDROCHLORIDE
     Dosage: TAKE ONE TEASPOONFUL BY MOUTH THREE TIMES DAILY AS NEEDED
     Route: 048
     Dates: start: 2011
  32. PROMETHAZINE DM [Concomitant]
     Active Substance: DEXTROMETHORPHAN HYDROBROMIDE\PROMETHAZINE HYDROCHLORIDE
     Route: 048
     Dates: start: 2014
  33. GENTAK [Concomitant]
     Active Substance: GENTAMICIN SULFATE
     Dosage: APPLY INTO EACH EYE THREE TIMES DAILY
     Route: 047
     Dates: start: 2013
  34. GENTAK [Concomitant]
     Active Substance: GENTAMICIN SULFATE
     Route: 047
     Dates: start: 2017
  35. PREDNISOLONE ACETATE [Concomitant]
     Active Substance: PREDNISOLONE ACETATE
     Dosage: SUSPENSION, INSTILL ONE TO TWO DROPS INTO EACH EYE
     Route: 047
     Dates: start: 2013
  36. PREDNISOLONE ACETATE [Concomitant]
     Active Substance: PREDNISOLONE ACETATE
     Route: 047
     Dates: start: 2017
  37. VITAMIN D2 [Concomitant]
     Active Substance: ERGOCALCIFEROL
     Dosage: TAKE ONE CAPSULE BY MOUTH ONCE A WEEK FOR 8 WEEKS
     Route: 048
     Dates: start: 2013
  38. LORAZEPAM [Concomitant]
     Active Substance: LORAZEPAM
     Dosage: TAKE ONE TAB BY MOUTH EVERY 6 TO 8 HOURS AS NEEDED
     Route: 048
     Dates: start: 2013
  39. DEXAMETHASONE [Concomitant]
     Active Substance: DEXAMETHASONE
     Dosage: TAKE TWO TABLET BY MOUTH TWICE DAILY FOR 2 DAYS AND THEN ONE TWICE DAILY FOR TWO DAYS
     Route: 048
     Dates: start: 20130826
  40. DEXAMETHASONE [Concomitant]
     Active Substance: DEXAMETHASONE
     Route: 065
     Dates: start: 20130814
  41. DEXAMETHASONE [Concomitant]
     Active Substance: DEXAMETHASONE
     Route: 042
     Dates: start: 20130826, end: 20131209
  42. SERTRALINE HYDROCHLORIDE [Concomitant]
     Active Substance: SERTRALINE HYDROCHLORIDE
     Route: 048
     Dates: start: 2010
  43. TRIAMCINOLONE [Concomitant]
     Active Substance: TRIAMCINOLONE
     Route: 065
  44. AZITHROMYCIN [Concomitant]
     Active Substance: AZITHROMYCIN
     Route: 048
     Dates: start: 2011
  45. AZITHROMYCIN [Concomitant]
     Active Substance: AZITHROMYCIN
     Dosage: TAKE TWO TAB BY MOUTH ON DAY 1, THEN 1 TAB ON DAYS 2-5
     Route: 048
     Dates: start: 2012
  46. AZITHROMYCIN [Concomitant]
     Active Substance: AZITHROMYCIN
     Route: 048
     Dates: start: 2014
  47. PREDNISONE [Concomitant]
     Active Substance: PREDNISONE
     Route: 065
     Dates: start: 2012
  48. OFLOXACIN [Concomitant]
     Active Substance: OFLOXACIN
     Route: 047
     Dates: start: 2013
  49. PROTONIX [Concomitant]
     Active Substance: PANTOPRAZOLE SODIUM
     Dosage: 1 TABLET ONCE DAILY
     Route: 048
     Dates: start: 20130718, end: 20130901
  50. COLACE [Concomitant]
     Active Substance: DOCUSATE SODIUM
     Dosage: 1 CAPSULE TWICE A DAY
     Route: 048
     Dates: start: 20130717, end: 20130901
  51. ANCEF [Concomitant]
     Active Substance: CEFAZOLIN SODIUM
     Route: 042
     Dates: start: 20130814
  52. ANCEF [Concomitant]
     Active Substance: CEFAZOLIN SODIUM
     Route: 042
     Dates: start: 20130717
  53. LIDOCAINE [Concomitant]
     Active Substance: LIDOCAINE
     Route: 065
     Dates: start: 20180314
  54. FENTANYL [Concomitant]
     Active Substance: FENTANYL
     Dosage: 100 MCG/2 ML
     Route: 042
     Dates: start: 20130717
  55. FENTANYL [Concomitant]
     Active Substance: FENTANYL
     Dosage: 50 MCG/ML
     Dates: start: 20130814
  56. EPHEDRINE [Concomitant]
     Active Substance: EPHEDRINE
     Route: 065
     Dates: start: 20130814
  57. PROPOFOL [Concomitant]
     Active Substance: PROPOFOL
     Route: 065
     Dates: start: 20130814
  58. NORCO [Concomitant]
     Active Substance: ACETAMINOPHEN\HYDROCODONE BITARTRATE
     Indication: Breast pain
     Dosage: 325/10 MG BY MOUTH (0.5 -1 TAB)
     Route: 048
     Dates: start: 20130717, end: 20130801
  59. NORCO [Concomitant]
     Active Substance: ACETAMINOPHEN\HYDROCODONE BITARTRATE
     Dosage: 325/5 MG BY MOUTH
     Route: 048
     Dates: start: 20130814
  60. FAMOTIDINE [Concomitant]
     Active Substance: FAMOTIDINE
     Dosage: 20 MG PER 2 ML VIAL
     Route: 065
     Dates: start: 20130814
  61. MIDAZOLAM [Concomitant]
     Active Substance: MIDAZOLAM
     Dosage: 2 MG/ML VIAL
     Route: 065
     Dates: start: 20130814
  62. METAMUCIL [Concomitant]
     Active Substance: PLANTAGO SEED
     Dosage: MIX 1 PACKET IN JUICE OR WATER, TID
     Route: 048
     Dates: start: 20130717, end: 20130901
  63. TYLENOL [Concomitant]
     Active Substance: ACETAMINOPHEN
     Indication: Pain
     Dosage: 1 TAB EVERY 4 HOURS AS NEEDED
     Route: 048
     Dates: start: 20130717, end: 20130901
  64. DULCOLAX NOS [Concomitant]
     Active Substance: BISACODYL OR DOCUSATE SODIUM
     Indication: Constipation
     Dosage: GIVEN AT HS
     Route: 048
     Dates: start: 20130717, end: 20130901
  65. VASOTEC [Concomitant]
     Active Substance: ENALAPRIL MALEATE
     Indication: Hypertension
     Dosage: EVERY 4 HOURS
     Route: 042
     Dates: start: 20130717, end: 20130901
  66. PHENERGAN [Concomitant]
     Active Substance: PROMETHAZINE HYDROCHLORIDE
     Indication: Nausea
     Dosage: 25 MG, EVERY 4 HOURS AS NEEDED
     Route: 042
     Dates: start: 20130717, end: 20130901
  67. DILAUDID [Concomitant]
     Active Substance: HYDROMORPHONE HYDROCHLORIDE
     Route: 042
     Dates: start: 20130717
  68. LACTATED RINGERS SOLUTION [Concomitant]
     Active Substance: CALCIUM CHLORIDE\POTASSIUM CHLORIDE\SODIUM CHLORIDE\SODIUM LACTATE
     Route: 042
     Dates: start: 20130717, end: 20130831
  69. KYTRIL [Concomitant]
     Active Substance: GRANISETRON HYDROCHLORIDE
     Route: 042

REACTIONS (10)
  - Alopecia areata [Not Recovered/Not Resolved]
  - Madarosis [Not Recovered/Not Resolved]
  - Hair texture abnormal [Not Recovered/Not Resolved]
  - Hair colour changes [Not Recovered/Not Resolved]
  - Haemoglobin decreased [Recovering/Resolving]
  - Nausea [Recovering/Resolving]
  - Vomiting [Recovering/Resolving]
  - Diarrhoea [Recovering/Resolving]
  - Fatigue [Unknown]
  - Constipation [Unknown]

NARRATIVE: CASE EVENT DATE: 20130901
